FAERS Safety Report 5034679-0 (Version None)
Quarter: 2006Q2

REPORT INFORMATION
  Report Type: 
  Country: None (occurrence: None)
  Receive Date: 20060621
  Receipt Date: 20060605
  Transmission Date: 20061013
  Serious: Yes (Death)
  Sender: FDA-Public Use
  Company Number: 2006001162

PATIENT
  Age: 69 Year
  Sex: Male

DRUGS (6)
  1. TARCEVA [Suspect]
     Indication: LUNG NEOPLASM MALIGNANT
     Dosage: 150 MG (QD), ORAL
     Route: 048
     Dates: start: 20060426, end: 20060502
  2. FUROSEMIDE [Concomitant]
  3. PANTOPRAZOLE SODIUM [Concomitant]
  4. SIMVASTATIN [Concomitant]
  5. ALBYL-E (ALBYL-ENTEROSOLUBILE) [Concomitant]
  6. CORDARONE [Concomitant]

REACTIONS (1)
  - THROMBOCYTOPENIA [None]
